FAERS Safety Report 13441021 (Version 2)
Quarter: 2017Q2

REPORT INFORMATION
  Report Type: Report from Study
  Country: GB (occurrence: GB)
  Receive Date: 20170413
  Receipt Date: 20170511
  Transmission Date: 20170830
  Serious: Yes (Hospitalization, Other)
  Sender: FDA-Public Use
  Company Number: GB-BRISTOL-MYERS SQUIBB COMPANY-BMS-2017-030265

PATIENT
  Age: 67 Year
  Sex: Female

DRUGS (8)
  1. PREDNISOLONE. [Concomitant]
     Active Substance: PREDNISOLONE
     Indication: ARTHRITIS
     Dosage: 1 MG, QD
     Route: 048
  2. ABATACEPT [Suspect]
     Active Substance: ABATACEPT
     Indication: RHEUMATOID ARTHRITIS
     Dosage: 125 MG, QWK
     Route: 058
     Dates: start: 20160323
  3. LEVOTHYROXINE. [Concomitant]
     Active Substance: LEVOTHYROXINE
     Indication: HYPOTHYROIDISM
     Dosage: 100 ?G, QD
     Route: 048
  4. METHOTREXATE. [Concomitant]
     Active Substance: METHOTREXATE
     Indication: ARTHRITIS
     Dosage: 20 MG, QWK
     Route: 058
  5. APIXABAN [Concomitant]
     Active Substance: APIXABAN
     Indication: CEREBROVASCULAR ACCIDENT
     Dosage: 5 MG, BID
     Route: 048
  6. LOSARTAN. [Concomitant]
     Active Substance: LOSARTAN
     Indication: HYPERTENSION
     Route: 048
  7. BISOPROLOL [Concomitant]
     Active Substance: BISOPROLOL
     Indication: MYOCARDIAL ISCHAEMIA
     Dosage: 2.5 MG, QD
     Route: 048
  8. HYDROXYCHLOROQUINE [Concomitant]
     Active Substance: HYDROXYCHLOROQUINE
     Indication: ARTHRITIS
     Dosage: 200 MG, UNK
     Route: 048

REACTIONS (2)
  - Pancreatitis [Recovered/Resolved]
  - Liver disorder [Unknown]

NARRATIVE: CASE EVENT DATE: 20160930
